FAERS Safety Report 24770767 (Version 1)
Quarter: 2024Q4

REPORT INFORMATION
  Report Type: Spontaneous
  Country: FR (occurrence: FR)
  Receive Date: 20241224
  Receipt Date: 20241224
  Transmission Date: 20250115
  Serious: Yes (Other)
  Sender: ACCORD
  Company Number: FR-Accord-460269

PATIENT
  Age: 56 Year
  Sex: Female

DRUGS (1)
  1. CISPLATIN [Suspect]
     Active Substance: CISPLATIN
     Indication: Ear, nose and throat disorder
     Route: 042
     Dates: start: 20241004, end: 20241128

REACTIONS (7)
  - Gastrostomy [Unknown]
  - Coronary ostial stenosis [Unknown]
  - Hypertension [Unknown]
  - Malaise [Unknown]
  - Asthenia [Unknown]
  - Diarrhoea [Unknown]
  - Vertigo [Unknown]

NARRATIVE: CASE EVENT DATE: 20241113
